FAERS Safety Report 6531091-X (Version None)
Quarter: 2010Q1

REPORT INFORMATION
  Report Type: 
  Country: None (occurrence: None)
  Receive Date: 20100108
  Receipt Date: 20091228
  Transmission Date: 20100710
  Serious: No
  Sender: FDA-Public Use
  Company Number: US-B.I. PHARMACEUTICALS,INC./RIDGEFIELD-2009-BP-12658BP

PATIENT
  Sex: Female

DRUGS (7)
  1. COMBIVENT [Suspect]
     Indication: CHRONIC OBSTRUCTIVE PULMONARY DISEASE
     Route: 055
     Dates: start: 20040101
  2. WARFARIN [Concomitant]
     Indication: PULMONARY EMBOLISM
     Route: 048
  3. FOLIC ACID [Concomitant]
     Route: 048
  4. PREDNISONE [Concomitant]
     Indication: SYSTEMIC LUPUS ERYTHEMATOSUS
     Route: 048
  5. AMITRIPTYLINE [Concomitant]
     Indication: SLEEP DISORDER
     Route: 048
  6. FUROSEMIDE [Concomitant]
     Indication: OEDEMA
     Route: 048
  7. PRIMIDONE [Concomitant]
     Indication: NERVOUSNESS
     Route: 048

REACTIONS (1)
  - NASOPHARYNGITIS [None]
